FAERS Safety Report 22939742 (Version 2)
Quarter: 2023Q4

REPORT INFORMATION
  Report Type: Spontaneous
  Country: GB (occurrence: GB)
  Receive Date: 20230913
  Receipt Date: 20231026
  Transmission Date: 20240110
  Serious: Yes (Other)
  Sender: FDA-Public Use
  Company Number: GB-002147023-NVSC2023GB195461

PATIENT
  Sex: Male

DRUGS (1)
  1. ENTRESTO [Suspect]
     Active Substance: SACUBITRIL\VALSARTAN
     Indication: Cardiac failure
     Dosage: 97/ 103 MG (ONE TABLET IN THE MORNING AND ONE IN THE NIGHT)
     Route: 065

REACTIONS (4)
  - Oesophageal carcinoma [Unknown]
  - Vomiting [Unknown]
  - Product use complaint [Unknown]
  - Wrong technique in product usage process [Unknown]
